FAERS Safety Report 8464835-0 (Version None)
Quarter: 2012Q2

REPORT INFORMATION
  Report Type: 
  Country: None (occurrence: None)
  Receive Date: 20120618
  Receipt Date: 20120604
  Transmission Date: 20120825
  Serious: Yes (Hospitalization)
  Sender: FDA-Public Use
  Company Number: 1310748

PATIENT
  Age: 34 Year
  Sex: Female

DRUGS (6)
  1. VINORELBINE [Suspect]
     Indication: METASTASES TO LYMPH NODES
     Dosage: 25 MG/M 2 MILLIGRAM(S)/SQ. METER INTRAVENOUS DRIP
     Route: 041
  2. VINORELBINE [Suspect]
     Indication: METASTASES TO BONE
     Dosage: 25 MG/M 2 MILLIGRAM(S)/SQ. METER INTRAVENOUS DRIP
     Route: 041
  3. VINORELBINE [Suspect]
     Indication: METASTASES TO LIVER
     Dosage: 25 MG/M 2 MILLIGRAM(S)/SQ. METER INTRAVENOUS DRIP
     Route: 041
  4. VINORELBINE [Suspect]
     Indication: BREAST CANCER METASTATIC
     Dosage: 25 MG/M 2 MILLIGRAM(S)/SQ. METER INTRAVENOUS DRIP
     Route: 041
  5. (THERAPEUTIC RADIOPHARMACEUTICALS) [Concomitant]
  6. CISPLATIN [Concomitant]

REACTIONS (13)
  - BACK PAIN [None]
  - DIZZINESS [None]
  - GRAND MAL CONVULSION [None]
  - GAZE PALSY [None]
  - OXYGEN SATURATION DECREASED [None]
  - VOMITING [None]
  - HYPERCALCAEMIA [None]
  - METASTASES TO BONE [None]
  - POSTERIOR REVERSIBLE ENCEPHALOPATHY SYNDROME [None]
  - MUSCULAR WEAKNESS [None]
  - DEPRESSED LEVEL OF CONSCIOUSNESS [None]
  - NAUSEA [None]
  - HYPERPHOSPHATAEMIA [None]
